FAERS Safety Report 12569658 (Version 1)
Quarter: 2016Q3

REPORT INFORMATION
  Report Type: Spontaneous
  Country: US (occurrence: None)
  Receive Date: 20160718
  Receipt Date: 20160718
  Transmission Date: 20161109
  Serious: Yes (Hospitalization)
  Sender: FDA-Public Use
  Company Number: None

PATIENT
  Age: 15 Year
  Sex: Female

DRUGS (2)
  1. TOBI PODHALER [Suspect]
     Active Substance: TOBRAMYCIN
     Indication: CYSTIC FIBROSIS
     Route: 055
     Dates: start: 20130918
  2. NACL [Concomitant]
     Active Substance: SODIUM CHLORIDE

REACTIONS (2)
  - Disease complication [None]
  - Cystic fibrosis [None]

NARRATIVE: CASE EVENT DATE: 20160704
